FAERS Safety Report 9633255 (Version 1)
Quarter: 2013Q4

REPORT INFORMATION
  Report Type: Spontaneous
  Country: US (occurrence: None)
  Receive Date: 20131018
  Receipt Date: 20131018
  Transmission Date: 20140711
  Serious: Yes (Disabling)
  Sender: FDA-Public Use
  Company Number: None

PATIENT
  Age: 72 Year
  Sex: Male
  Weight: 97.07 kg

DRUGS (1)
  1. MYRBETRIQ [Suspect]
     Indication: NOCTURIA
     Dosage: 1 PILL
     Route: 048
     Dates: start: 20130821, end: 20131001

REACTIONS (3)
  - Constipation [None]
  - Anorectal disorder [None]
  - Change of bowel habit [None]
